FAERS Safety Report 8276382-X (Version None)
Quarter: 2012Q2

REPORT INFORMATION
  Report Type: 
  Country: None (occurrence: None)
  Receive Date: 20120412
  Receipt Date: 20120406
  Transmission Date: 20120825
  Serious: Yes (Hospitalization, Other)
  Sender: FDA-Public Use
  Company Number: US-JNJFOC-20120201645

PATIENT
  Sex: Female
  Weight: 64.2 kg

DRUGS (10)
  1. PANCREAZE [Suspect]
     Dosage: MT16 CAPSULES BEFORE MEALS AND AT BEDTIME
     Route: 048
     Dates: start: 20120126
  2. PREVACID [Concomitant]
     Dates: start: 20080101, end: 20111201
  3. PREVACID [Concomitant]
     Indication: ABDOMINAL DISCOMFORT
     Dates: start: 20120126
  4. PANCREAZE [Suspect]
     Indication: PANCREATITIS RELAPSING
     Route: 048
     Dates: start: 20110101, end: 20110101
  5. PREVACID [Concomitant]
     Indication: GASTRITIS
     Dates: start: 20080101, end: 20111201
  6. PREVACID [Concomitant]
     Dates: start: 20120126
  7. PANCREAZE [Suspect]
     Route: 048
     Dates: start: 20110101, end: 20110101
  8. PANCREAZE [Suspect]
     Indication: PANCREATITIS RELAPSING
     Dosage: 50, 400 UNITS
     Route: 048
  9. VICODIN [Concomitant]
     Indication: PANCREATITIS
     Route: 048
     Dates: start: 20120101
  10. PANCREAZE [Suspect]
     Indication: PANCREATITIS CHRONIC
     Dosage: MT16 CAPSULES BEFORE MEALS AND AT BEDTIME
     Route: 048
     Dates: start: 20120126

REACTIONS (5)
  - ADVERSE EVENT [None]
  - PANCREATITIS ACUTE [None]
  - DISEASE PROGRESSION [None]
  - ENZYME ABNORMALITY [None]
  - SKIN WRINKLING [None]
